FAERS Safety Report 6835496-9 (Version None)
Quarter: 2010Q3

REPORT INFORMATION
  Report Type: 
  Country: None (occurrence: None)
  Receive Date: 20100713
  Receipt Date: 20100629
  Transmission Date: 20110219
  Serious: Yes (Hospitalization, Other)
  Sender: FDA-Public Use
  Company Number: PHHY2010US34334

PATIENT
  Sex: Female

DRUGS (9)
  1. GLEEVEC [Suspect]
     Indication: CHRONIC MYELOID LEUKAEMIA
     Dosage: 400 MG, DAILY
     Dates: start: 20070501
  2. IRON [Concomitant]
  3. NORVASC [Concomitant]
  4. SERTRALINE HCL [Concomitant]
  5. SIMVASTATIN [Concomitant]
  6. XANAX [Concomitant]
  7. AMBIEN [Concomitant]
  8. CALTRATE +D [Concomitant]
  9. HYDROCODONE BITARTRATE [Concomitant]

REACTIONS (12)
  - ANXIETY [None]
  - CHILLS [None]
  - CRYING [None]
  - DEMENTIA [None]
  - DIZZINESS [None]
  - FATIGUE [None]
  - GLOMERULAR FILTRATION RATE DECREASED [None]
  - HAEMOGLOBIN DECREASED [None]
  - HYPOKINESIA [None]
  - KYPHOSIS [None]
  - ROTATOR CUFF SYNDROME [None]
  - STRESS [None]
